FAERS Safety Report 7039674-8 (Version None)
Quarter: 2010Q4

REPORT INFORMATION
  Report Type: 
  Country: None (occurrence: None)
  Receive Date: 20101012
  Receipt Date: 20101005
  Transmission Date: 20110411
  Serious: Yes (Hospitalization)
  Sender: FDA-Public Use
  Company Number: B0678939A

PATIENT
  Sex: Female

DRUGS (3)
  1. ECOVAL [Suspect]
     Indication: DERMATOSIS
     Dosage: 1U PER DAY
     Route: 061
     Dates: start: 20100615, end: 20100615
  2. AMOXICILLIN AND CLAVULANATE POTASSIUM [Suspect]
     Dosage: 4G PER DAY
     Route: 048
     Dates: start: 20100616, end: 20100618
  3. ZYRTEC [Concomitant]
     Dates: start: 20100615, end: 20100615

REACTIONS (4)
  - BURNING SENSATION [None]
  - EXFOLIATIVE RASH [None]
  - OEDEMA [None]
  - PRURITUS GENERALISED [None]
